FAERS Safety Report 8496565-3 (Version None)
Quarter: 2012Q2

REPORT INFORMATION
  Report Type: 
  Country: None (occurrence: None)
  Receive Date: 20120629
  Receipt Date: 20120615
  Transmission Date: 20120825
  Serious: Yes (Hospitalization, Other)
  Sender: FDA-Public Use
  Company Number: 2012000148

PATIENT
  Age: 71 Year
  Sex: Male

DRUGS (6)
  1. ESOMEPRAZOLE MAGNESIUM [Concomitant]
  2. PLAVIX [Concomitant]
  3. HMG COA REDUCTASE INHIBITORS [Concomitant]
  4. ACEON [Suspect]
     Indication: PRODUCT USED FOR UNKNOWN INDICATION
     Dosage: 2 MG, QD, ORAL ; 5MG, QD, ORAL ; 2 MG, QD, ORAL ; ORAL
     Route: 048
     Dates: start: 20120520, end: 20120530
  5. LERCANIDIPINE [Concomitant]
  6. ACEBUTOLOL [Concomitant]

REACTIONS (6)
  - ERYTHEMA [None]
  - VERTIGO [None]
  - DIARRHOEA [None]
  - DECREASED APPETITE [None]
  - DYSAESTHESIA [None]
  - NAUSEA [None]
